FAERS Safety Report 8146063-1 (Version None)
Quarter: 2012Q1

REPORT INFORMATION
  Report Type: 
  Country: None (occurrence: None)
  Receive Date: 20120217
  Receipt Date: 20110219
  Transmission Date: 20120608
  Serious: No
  Sender: FDA-Public Use
  Company Number: US-ABBOTT-11P-163-0706233-00

PATIENT
  Sex: Male
  Weight: 88.076 kg

DRUGS (3)
  1. COUMADIN [Concomitant]
     Indication: PRODUCT USED FOR UNKNOWN INDICATION
  2. TRICOR [Concomitant]
     Indication: PRODUCT USED FOR UNKNOWN INDICATION
  3. SIMCOR [Suspect]
     Indication: BLOOD TRIGLYCERIDES INCREASED
     Dosage: 1000/20MG 2 TAB AT BEDTIME

REACTIONS (3)
  - PAIN IN EXTREMITY [None]
  - TENDERNESS [None]
  - ERYTHEMA [None]
